FAERS Safety Report 5304681-X (Version None)
Quarter: 2007Q2

REPORT INFORMATION
  Report Type: 
  Country: None (occurrence: None)
  Receive Date: 20070416
  Receipt Date: 20070405
  Transmission Date: 20071010
  Serious: Yes (Hospitalization)
  Sender: FDA-Public Use
  Company Number: 056-C5013-07040465

PATIENT
  Age: 67 Year
  Sex: Female
  Weight: 48 kg

DRUGS (1)
  1. CC-5013 (LENALIDOMIDE) (CAPSULES) [Suspect]
     Indication: MULTIPLE MYELOMA
     Dosage: DAILY, ORAL
     Route: 048
     Dates: start: 20070117, end: 20070207

REACTIONS (7)
  - ATRIAL FIBRILLATION [None]
  - DIARRHOEA [None]
  - FACIAL BONES FRACTURE [None]
  - FALL [None]
  - PHLEBITIS [None]
  - PULMONARY EMBOLISM [None]
  - VOMITING [None]
